FAERS Safety Report 20637946 (Version 4)
Quarter: 2023Q2

REPORT INFORMATION
  Report Type: Spontaneous
  Country: US (occurrence: US)
  Receive Date: 20220325
  Receipt Date: 20230407
  Transmission Date: 20230722
  Serious: Yes (Other)
  Sender: FDA-Public Use
  Company Number: US-PFIZER INC-202200214940

PATIENT
  Sex: Female
  Weight: 70.31 kg

DRUGS (1)
  1. VENLAFAXINE [Suspect]
     Active Substance: VENLAFAXINE HYDROCHLORIDE
     Indication: Serotonin deficiency
     Dosage: UNK
     Route: 065

REACTIONS (3)
  - Chronic kidney disease [Unknown]
  - Blood sodium decreased [Unknown]
  - Product substitution issue [Unknown]
